FAERS Safety Report 4510284-7 (Version None)
Quarter: 2004Q4

REPORT INFORMATION
  Report Type: 
  Country: None (occurrence: None)
  Receive Date: 20041124
  Receipt Date: 20041111
  Transmission Date: 20050328
  Serious: Yes (Hospitalization)
  Sender: FDA-Public Use
  Company Number: JP-JNJFOC-20040900487

PATIENT
  Sex: Female

DRUGS (4)
  1. ITRIZOLE [Suspect]
     Indication: KERION
     Route: 049
  2. GENTAMICIN SULFATE [Concomitant]
     Route: 065
  3. LOXOPROFEN SODIUM [Concomitant]
     Route: 049
  4. SODIUM PICOSULFATE [Concomitant]
     Indication: CONSTIPATION
     Route: 049

REACTIONS (7)
  - ABASIA [None]
  - ALOPECIA [None]
  - MYALGIA [None]
  - POLYMYALGIA RHEUMATICA [None]
  - PYREXIA [None]
  - RASH PUSTULAR [None]
  - SKIN DESQUAMATION [None]
